FAERS Safety Report 7428717-5 (Version None)
Quarter: 2011Q2

REPORT INFORMATION
  Report Type: 
  Country: None (occurrence: None)
  Receive Date: 20110413
  Receipt Date: 20110329
  Transmission Date: 20111010
  Serious: No
  Sender: FDA-Public Use
  Company Number: AUR-APL-2011-01133

PATIENT
  Age: 48 Year
  Sex: Male

DRUGS (4)
  1. ALLOPURINOL [Concomitant]
  2. SIMVASTATIN [Concomitant]
  3. AZITHROMYCIN [Suspect]
     Indication: GASTROENTERITIS SALMONELLA
     Dosage: ORAL
     Route: 048
  4. CIPROFLOXACIN [Suspect]
     Indication: TYPHOID FEVER
     Dosage: 500MG-BID-ORAL
     Route: 048

REACTIONS (8)
  - PYREXIA [None]
  - COUGH [None]
  - TREATMENT FAILURE [None]
  - DRUG RESISTANCE [None]
  - CONDITION AGGRAVATED [None]
  - ALANINE AMINOTRANSFERASE INCREASED [None]
  - BLOOD ALKALINE PHOSPHATASE INCREASED [None]
  - CHILLS [None]
